FAERS Safety Report 10371019 (Version 1)
Quarter: 2014Q1

REPORT INFORMATION
  Report Type: Report from Study
  Country: US (occurrence: None)
  Receive Date: 20140306
  Receipt Date: 20140306
  Transmission Date: 20141002
  Serious: Yes (Hospitalization)
  Sender: FDA-Public Use
  Company Number: 163-21880-12022394

PATIENT
  Age: 62 Year
  Sex: Male

DRUGS (18)
  1. REVLIMID (LENALIDOMIDE) (CAPSULES) [Suspect]
     Indication: PLASMA CELL MYELOMA
     Route: 048
     Dates: start: 20111130
  2. ELOTUZUMAB (ELOTUZUMAB) (UNKNOWN) [Suspect]
     Indication: PLASMA CELL MYELOMA
     Route: 042
     Dates: start: 20111130
  3. DEXAMETHASONE (DEXAMETHASONE) (INJECTION) (DEXAMETHASONE) [Suspect]
     Indication: PLASMA CELL MYELOMA
     Route: 042
     Dates: start: 20111130
  4. PRILOSEC (OMEPRAZOLE) [Concomitant]
  5. CYTOTEC (MISOPROSTOL) [Concomitant]
  6. ZOCOR (SIMVASTATIN) [Concomitant]
  7. SYNTHROID (LEVOTHYROXINE SODIUM) [Concomitant]
  8. LEXAPRO (ESCITALOPRAM OXALATE) [Concomitant]
  9. ZANTAC (RANITIDINE HYYDROCHLORIDE) [Concomitant]
  10. ASPIRIN (ACETYLSALICYLIC ACID) [Concomitant]
  11. FOLIC ACID [Concomitant]
  12. SUPER-B COMPLEX (VITAMIN-B-KOMPLEX STANDARD) [Concomitant]
  13. MULTIVITAMIN (MULTIVITAMINS) [Concomitant]
  14. ZOMETA (ZOLEDRONIC ACID) [Concomitant]
  15. METOPROLOL [Concomitant]
  16. PLAVIX (CLOPIDOGREL SULFATE) [Concomitant]
  17. VISCOUS LIDOCAINE (LIDOCAINE HYDROCHLORIDE) [Concomitant]
  18. LEVAQUIN (LEVOFLOXACIN) [Concomitant]

REACTIONS (1)
  - Angina pectoris [None]
